FAERS Safety Report 4909138-3 (Version None)
Quarter: 2006Q1

REPORT INFORMATION
  Report Type: 
  Country: None (occurrence: None)
  Receive Date: 20060208
  Receipt Date: 20060127
  Transmission Date: 20060701
  Serious: Yes (Other)
  Sender: FDA-Public Use
  Company Number: 2006BH001611

PATIENT
  Age: 77 Year
  Sex: Male

DRUGS (7)
  1. VANCOMYCIN HCL [Suspect]
     Indication: STAPHYLOCOCCAL INFECTION
     Dosage: 1750 MG; IV
     Route: 042
  2. AZTREONAM [Concomitant]
  3. CEFAZOLIN [Concomitant]
  4. CIPROFLOXACIN [Concomitant]
  5. CEFTAZIDIME [Concomitant]
  6. TOBRAMYCIN [Concomitant]
  7. CLINDAMYCIN HCL [Concomitant]

REACTIONS (2)
  - LINEAR IGA DISEASE [None]
  - TOXIC EPIDERMAL NECROLYSIS [None]
